FAERS Safety Report 7865279-2 (Version None)
Quarter: 2011Q4

REPORT INFORMATION
  Report Type: 
  Country: None (occurrence: None)
  Receive Date: 20111028
  Receipt Date: 20101115
  Transmission Date: 20120403
  Serious: No
  Sender: FDA-Public Use
  Company Number: US-GLAXOSMITHKLINE-A0892557A

PATIENT
  Age: 80 Year
  Sex: Male

DRUGS (5)
  1. CHLORTHALIDONE [Concomitant]
  2. ALBUTEROL [Concomitant]
  3. ADVAIR DISKUS 100/50 [Suspect]
     Indication: ASTHMA
     Dosage: 1PUFF PER DAY
     Route: 055
     Dates: start: 20101001, end: 20101101
  4. SINGULAIR [Concomitant]
  5. SIMVASTATIN [Concomitant]

REACTIONS (4)
  - APHONIA [None]
  - BLOOD PRESSURE INCREASED [None]
  - LIP SWELLING [None]
  - DYSPHONIA [None]
